FAERS Safety Report 5140456-2 (Version None)
Quarter: 2006Q4

REPORT INFORMATION
  Report Type: 
  Country: None (occurrence: None)
  Receive Date: 20061025
  Receipt Date: 20061019
  Transmission Date: 20070319
  Serious: Yes (Death)
  Sender: FDA-Public Use
  Company Number: 2006SP002434

PATIENT
  Age: 53 Year
  Sex: Male

DRUGS (2)
  1. PEG-INTRON [Suspect]
     Indication: HEPATITIS C
     Dosage: 80 MCG; QW;
  2. RIBAVIRIN [Suspect]
     Indication: HEPATITIS C
     Dosage: 1000 MG; QD;

REACTIONS (17)
  - ABDOMINAL PAIN [None]
  - ARTERIAL OCCLUSIVE DISEASE [None]
  - ARTERITIS [None]
  - CRYOGLOBULINAEMIA [None]
  - DIARRHOEA [None]
  - GASTROINTESTINAL ISCHAEMIA [None]
  - HAEMORRHAGE [None]
  - HEPATIC FAILURE [None]
  - HEPATORENAL SYNDROME [None]
  - JEJUNITIS [None]
  - METABOLIC ACIDOSIS [None]
  - MUCOSAL INFLAMMATION [None]
  - PANCREATITIS ACUTE [None]
  - PULMONARY OEDEMA [None]
  - RENAL FAILURE [None]
  - VASCULITIS GASTROINTESTINAL [None]
  - WHITE BLOOD CELL COUNT INCREASED [None]
